FAERS Safety Report 9274829 (Version 1)
Quarter: 2013Q2

REPORT INFORMATION
  Report Type: Spontaneous
  Country: US (occurrence: None)
  Receive Date: 20130501
  Receipt Date: 20130501
  Transmission Date: 20140414
  Serious: Yes (Other)
  Sender: FDA-Public Use
  Company Number: None

PATIENT
  Age: 56 Year
  Sex: Female
  Weight: 103.87 kg

DRUGS (1)
  1. LANSOPRAZOLE [Suspect]
     Indication: GASTRIC DISORDER
     Route: 048
     Dates: start: 20130129, end: 20130410

REACTIONS (4)
  - Gastrooesophageal reflux disease [None]
  - Discomfort [None]
  - Product substitution issue [None]
  - Product quality issue [None]
